FAERS Safety Report 22157107 (Version 2)
Quarter: 2023Q2

REPORT INFORMATION
  Report Type: Spontaneous
  Country: BR (occurrence: BR)
  Receive Date: 20230330
  Receipt Date: 20230512
  Transmission Date: 20230721
  Serious: Yes (Life-Threatening, Other)
  Sender: FDA-Public Use
  Company Number: BR-TAKEDA-2023TUS032647

PATIENT
  Age: 66 Year
  Sex: Female
  Weight: 70 kg

DRUGS (2)
  1. DEXILANT [Suspect]
     Active Substance: DEXLANSOPRAZOLE
     Indication: Reflux gastritis
     Dosage: 60 MILLIGRAM, BID
     Route: 048
     Dates: start: 202302
  2. DOMPERIDONE [Concomitant]
     Active Substance: DOMPERIDONE
     Indication: Reflux gastritis
     Dosage: 10 MILLIGRAM, TID
     Route: 048

REACTIONS (7)
  - Asphyxia [Unknown]
  - Off label use [Unknown]
  - Reaction to excipient [Unknown]
  - Drug ineffective for unapproved indication [Unknown]
  - Dyspnoea [Unknown]
  - Overdose [Unknown]
  - Vomiting [Unknown]

NARRATIVE: CASE EVENT DATE: 20230201
